FAERS Safety Report 6539327-6 (Version None)
Quarter: 2010Q1

REPORT INFORMATION
  Report Type: 
  Country: None (occurrence: None)
  Receive Date: 20100115
  Receipt Date: 20100104
  Transmission Date: 20100710
  Serious: Yes (Other)
  Sender: FDA-Public Use
  Company Number: PHEH2004US01690

PATIENT
  Sex: Female

DRUGS (28)
  1. AREDIA [Suspect]
     Indication: METASTASES TO BONE
     Dosage: 90 MG,Q 4-6 WKS
     Dates: start: 19961004, end: 20040101
  2. PAMIDRONATE DISODIUM [Suspect]
     Dosage: UNK MG, Q 4 WKS
     Route: 042
     Dates: start: 20000101, end: 20040106
  3. ZOMETA [Suspect]
     Indication: BREAST CANCER
     Dosage: 4 MG, QMO
     Route: 042
     Dates: end: 20070801
  4. PROCRIT [Concomitant]
  5. OXYCONTIN [Concomitant]
  6. DECADRON [Concomitant]
     Dosage: 26MG TO 4MG/WITH CHEMO
     Dates: start: 20010220
  7. TAMOXIFEN CITRATE [Concomitant]
  8. NAVELBINE [Concomitant]
     Dosage: 3 WEEKS ON, 1 WEEK OFF
  9. COUMADIN [Concomitant]
     Dosage: 2.5MG, ALTERNATING WITH 5MG / EVERY OTHER DAY
  10. LEVOXYL [Concomitant]
     Dosage: 112 MG / DAILY
     Dates: start: 20080918
  11. COMPAZINE [Concomitant]
     Indication: NAUSEA
     Dosage: 10 MG / EVERY 8 HRS
     Route: 048
  12. DYAZIDE [Concomitant]
     Dosage: UNK
  13. MORPHINE SULFATE [Concomitant]
     Dosage: 15 MG / 8 MG  / PRN
  14. IBUPROFEN [Concomitant]
     Dosage: 800 MG / PRN
  15. CLONAZEPAM [Concomitant]
     Dosage: 1 MG / DAILY
  16. NEUPOGEN [Concomitant]
     Dosage: 300 MG
  17. ARIXTRA [Concomitant]
     Dosage: 7.5 MG
  18. TRIAMTERENE AND HYDROCHLOROTHIAZID ^HARRIS^ [Concomitant]
     Dosage: 37.5/25
  19. SYNTHROID [Concomitant]
     Dosage: 112 MCG
  20. WARFARIN SODIUM [Concomitant]
     Dosage: 1 MG
  21. CITALOPRAM [Concomitant]
     Dosage: 40 MG
  22. AUGMENTAN ORAL [Concomitant]
     Dosage: 875 MG / BID
     Dates: end: 20081027
  23. DILAUDID [Concomitant]
     Indication: PAIN
     Dosage: UNK
  24. PEN-VEE K [Concomitant]
     Dosage: 500 MG
     Dates: start: 20081106
  25. MS CONTIN [Concomitant]
     Dosage: UNK
  26. CELEBREX [Concomitant]
     Dosage: UNK
  27. NEURONTIN [Concomitant]
  28. PENICILLIN ^GRUNENTHAL^ [Concomitant]
     Dosage: UNK

REACTIONS (27)
  - ARTHRALGIA [None]
  - BONE DISORDER [None]
  - BREAST CANCER METASTATIC [None]
  - DIARRHOEA [None]
  - DYSPHAGIA [None]
  - HEPATIC LESION [None]
  - JAW DISORDER [None]
  - JAW OPERATION [None]
  - MOUTH ULCERATION [None]
  - NAUSEA [None]
  - NEUROPATHY PERIPHERAL [None]
  - NEUTROPENIA [None]
  - ORAL DISORDER [None]
  - ORAL PAIN [None]
  - OROPHARYNGEAL PAIN [None]
  - OSTEITIS [None]
  - OSTEOMYELITIS [None]
  - OSTEONECROSIS [None]
  - OSTEOPOROSIS [None]
  - PAIN IN EXTREMITY [None]
  - PAIN IN JAW [None]
  - PALMAR-PLANTAR ERYTHRODYSAESTHESIA SYNDROME [None]
  - PARAESTHESIA [None]
  - SURGERY [None]
  - SWOLLEN TONGUE [None]
  - TOOTH EXTRACTION [None]
  - TUMOUR MARKER INCREASED [None]
